FAERS Safety Report 10813081 (Version 1)
Quarter: 2015Q1

REPORT INFORMATION
  Report Type: Report from Study
  Country: US (occurrence: US)
  Receive Date: 20150218
  Receipt Date: 20150218
  Transmission Date: 20150721
  Serious: No
  Sender: FDA-Public Use
  Company Number: US-ABBVIE-14K-163-1272060-00

PATIENT
  Age: 6 Year
  Sex: Female

DRUGS (3)
  1. NAPROXEN. [Concomitant]
     Active Substance: NAPROXEN
     Indication: PRODUCT USED FOR UNKNOWN INDICATION
  2. METHOTREXATE [Concomitant]
     Active Substance: METHOTREXATE
     Indication: PRODUCT USED FOR UNKNOWN INDICATION
     Dosage: EVERY FRIDAY
  3. HUMIRA [Suspect]
     Active Substance: ADALIMUMAB
     Indication: JUVENILE IDIOPATHIC ARTHRITIS
     Dates: start: 20140530

REACTIONS (6)
  - Nervousness [Unknown]
  - Injection site haemorrhage [Not Recovered/Not Resolved]
  - Tension [Unknown]
  - Injection site pain [Not Recovered/Not Resolved]
  - Screaming [Unknown]
  - Anxiety [Unknown]

NARRATIVE: CASE EVENT DATE: 20140530
